FAERS Safety Report 9277982 (Version 2)
Quarter: 2013Q4

REPORT INFORMATION
  Report Type: Report from Study
  Country: US (occurrence: US)
  Receive Date: 20130508
  Receipt Date: 20131030
  Transmission Date: 20140711
  Serious: Yes (Hospitalization)
  Sender: FDA-Public Use
  Company Number: US-BIOGENIDEC-2012BI026810

PATIENT
  Age: 48 Year
  Sex: Male
  Weight: 70 kg

DRUGS (8)
  1. BG00012 [Suspect]
     Indication: MULTIPLE SCLEROSIS
     Dates: start: 20100401, end: 20120511
  2. BG00012 [Suspect]
     Indication: MULTIPLE SCLEROSIS
     Dates: start: 20120511
  3. FISH OIL [Concomitant]
     Indication: SUPPLEMENTATION THERAPY
     Route: 048
     Dates: start: 20100622
  4. ACCURETIC [Concomitant]
     Indication: HYPERTENSION
     Route: 048
     Dates: start: 2007
  5. BABY ASPIRIN [Concomitant]
     Indication: HYPERTENSION
     Route: 048
     Dates: start: 2007
  6. AMANTADINE [Concomitant]
     Indication: FATIGUE
     Route: 048
     Dates: start: 20110507
  7. PRILOSEC [Concomitant]
     Indication: DYSPEPSIA
     Route: 048
     Dates: start: 2000
  8. TUMS [Concomitant]
     Indication: DYSPEPSIA
     Route: 048
     Dates: start: 20080813

REACTIONS (1)
  - Non-cardiac chest pain [Recovered/Resolved]
